FAERS Safety Report 7479503-1 (Version None)
Quarter: 2011Q2

REPORT INFORMATION
  Report Type: 
  Country: None (occurrence: None)
  Receive Date: 20110513
  Receipt Date: 20110510
  Transmission Date: 20111010
  Serious: Yes (Death, Hospitalization, Other)
  Sender: FDA-Public Use
  Company Number: PHHY2011US35438

PATIENT
  Sex: Male

DRUGS (29)
  1. AFINITOR [Suspect]
     Indication: RENAL CANCER
     Dosage: 10 MG DAILY
     Route: 048
     Dates: start: 20100228
  2. SPIRIVA [Concomitant]
     Indication: CHRONIC OBSTRUCTIVE PULMONARY DISEASE
     Dosage: 35 MG, IN MORNING
  3. XALATAN [Concomitant]
     Indication: GLAUCOMA
  4. BYETTA [Concomitant]
     Dosage: 10 MG, UNK
  5. SPIRONOLACTONE [Concomitant]
     Dosage: 50 MG, UNK
  6. WARFARIN SODIUM [Concomitant]
     Indication: HAEMATOMA
  7. ASPIRIN [Concomitant]
  8. HYDROCHLOROTHIAZIDE [Concomitant]
  9. FLUOXETINE [Concomitant]
     Indication: DEPRESSION
     Dosage: 40 MG, UNK
  10. MORPHINE [Concomitant]
     Indication: PAIN
  11. PROCHLORPERAZINE TAB [Concomitant]
     Dosage: 10 MG, UNK
  12. ZANTAC [Concomitant]
     Dosage: 75 MG, UNK
  13. MIRAPEX [Concomitant]
  14. DIOVAN [Concomitant]
     Indication: BLOOD PRESSURE
     Dosage: 20 MG, UNK
  15. LANTUS [Concomitant]
     Indication: DIABETES MELLITUS
     Dosage: 4 U, UNK
  16. PRAVASTATIN [Concomitant]
     Indication: BLOOD CHOLESTEROL
     Dosage: 40 MG, UNK
  17. GABAPENTIN [Concomitant]
     Indication: NEURALGIA
     Dosage: 300 MG, TID
  18. IMODIUM [Concomitant]
     Indication: DIARRHOEA
  19. DITROPAN [Concomitant]
     Dosage: 5 MG, BID
  20. FLUDROCORTISONE ACETATE [Concomitant]
     Dosage: 0.2 MG, BID
  21. FLOMAX [Concomitant]
     Dosage: 0.4 MG, UNK
  22. POTASSIUM [Concomitant]
     Dosage: 40 MEQ, UNK
  23. PREDNISONE [Concomitant]
     Dosage: 10 MG, UNK
  24. SYNTHROID [Concomitant]
     Indication: BASEDOW'S DISEASE
     Dosage: 0.2 MG, UNK
  25. ACTONEL [Concomitant]
     Dosage: 25 MG, UNK
  26. CYCLOBENZAPRINE [Concomitant]
  27. BACLOFEN [Concomitant]
     Indication: MUSCLE SPASMS
     Dosage: 20 MG, TID
  28. ACETAMINOPHEN [Concomitant]
     Indication: HEADACHE
  29. AMLODIPINE BESYLATE [Concomitant]
     Indication: BLOOD PRESSURE
     Dosage: 2.5 MG, UNK

REACTIONS (17)
  - PRODUCTIVE COUGH [None]
  - RALES [None]
  - BLOOD PRESSURE INCREASED [None]
  - PNEUMONITIS [None]
  - ASTHENIA [None]
  - NEOPLASM MALIGNANT [None]
  - METASTASES TO BONE [None]
  - WHEELCHAIR USER [None]
  - BLOOD TRIGLYCERIDES INCREASED [None]
  - HYPERSOMNIA [None]
  - OEDEMA PERIPHERAL [None]
  - PAIN [None]
  - BONE MARROW FAILURE [None]
  - PYREXIA [None]
  - FATIGUE [None]
  - METASTASES TO SPINE [None]
  - BONE PAIN [None]
